FAERS Safety Report 7659210-2 (Version None)
Quarter: 2011Q3

REPORT INFORMATION
  Report Type: 
  Country: None (occurrence: None)
  Receive Date: 20110805
  Receipt Date: 20110802
  Transmission Date: 20111222
  Serious: Yes (Death)
  Sender: FDA-Public Use
  Company Number: GB-PFIZER INC-2011175918

PATIENT
  Age: 60 Year
  Sex: Male

DRUGS (12)
  1. GEMTUZUMAB OZOGAMICIN [Suspect]
     Indication: MYELODYSPLASTIC SYNDROME
  2. DAUNORUBICIN HCL [Suspect]
     Indication: ACUTE MYELOID LEUKAEMIA
     Dosage: UNK
     Dates: start: 20110707, end: 20110717
  3. CYTARABINE [Suspect]
     Indication: ACUTE MYELOID LEUKAEMIA
     Dosage: UNK
     Dates: start: 20110707, end: 20110717
  4. ETOPOSIDE [Suspect]
     Indication: ACUTE MYELOID LEUKAEMIA
     Dosage: UNK
     Dates: start: 20110707, end: 20110717
  5. DAUNORUBICIN HCL [Suspect]
     Indication: MYELODYSPLASTIC SYNDROME
  6. PARACETAMOL [Concomitant]
     Dosage: 1 G, UNK
     Dates: start: 20110730, end: 20110731
  7. TEICOPLANIN [Concomitant]
     Dosage: 400 MG, UNK
     Dates: start: 20110730, end: 20110730
  8. PIPERACILLIN AND TAZOBACTAM [Concomitant]
     Dosage: 4.5 G, UNK
     Dates: start: 20110728, end: 20110730
  9. CEFTAZIDIME [Concomitant]
     Dosage: 2 G, UNK
     Dates: start: 20110730, end: 20110731
  10. CYTARABINE [Suspect]
     Indication: MYELODYSPLASTIC SYNDROME
  11. ETOPOSIDE [Suspect]
     Indication: MYELODYSPLASTIC SYNDROME
  12. GEMTUZUMAB OZOGAMICIN [Suspect]
     Indication: ACUTE MYELOID LEUKAEMIA
     Dosage: UNK
     Dates: start: 20110707, end: 20110717

REACTIONS (5)
  - SEPSIS [None]
  - CARDIAC ARREST [None]
  - NEUTROPENIA [None]
  - ISCHAEMIA [None]
  - DRUG INTERACTION [None]
